FAERS Safety Report 11765848 (Version 1)
Quarter: 2015Q4

REPORT INFORMATION
  Report Type: Spontaneous
  Country: US (occurrence: US)
  Receive Date: 20151121
  Receipt Date: 20151121
  Transmission Date: 20160304
  Serious: No
  Sender: FDA-Public Use
  Company Number: US-CELGENEUS-USA-2015112649

PATIENT
  Age: 73 Year
  Sex: Female
  Weight: 68.1 kg

DRUGS (2)
  1. OTEZLA [Suspect]
     Active Substance: APREMILAST
     Indication: RHEUMATOID ARTHRITIS
  2. OTEZLA [Suspect]
     Active Substance: APREMILAST
     Indication: MYOPATHY
     Dosage: 60 MILLIGRAM
     Route: 048
     Dates: start: 20151013

REACTIONS (1)
  - Diarrhoea [Unknown]

NARRATIVE: CASE EVENT DATE: 20151015
